FAERS Safety Report 8981357 (Version 2)
Quarter: 2013Q2

REPORT INFORMATION
  Report Type: Spontaneous
  Country: US (occurrence: US)
  Receive Date: 20121221
  Receipt Date: 20130426
  Transmission Date: 20140414
  Serious: Yes (Hospitalization, Other)
  Sender: FDA-Public Use
  Company Number: US-BAYER-2012-132989

PATIENT
  Age: 25 Year
  Sex: Female

DRUGS (5)
  1. YASMIN [Suspect]
     Dosage: UNK
     Dates: start: 2004, end: 201008
  2. OCELLA [Suspect]
     Dosage: UNK
     Dates: start: 201008, end: 201102
  3. METFORMIN [Concomitant]
  4. SIMVASTATIN [Concomitant]
  5. LORAZEPAM [Concomitant]

REACTIONS (10)
  - Thrombophlebitis superficial [None]
  - Cerebral thrombosis [None]
  - Cerebral venous thrombosis [None]
  - Injury [None]
  - Pain [None]
  - Emotional distress [None]
  - General physical health deterioration [None]
  - Anxiety [None]
  - Pain [None]
  - Contraindication to medical treatment [None]
